FAERS Safety Report 12256657 (Version 1)
Quarter: 2016Q2

REPORT INFORMATION
  Report Type: Report from Study
  Country: AU (occurrence: AU)
  Receive Date: 20160412
  Receipt Date: 20160412
  Transmission Date: 20160815
  Serious: Yes (Death, Other)
  Sender: FDA-Public Use
  Company Number: AU-CELGENEUS-AUS-2015064338

PATIENT

DRUGS (2)
  1. REVLIMID [Suspect]
     Active Substance: LENALIDOMIDE
     Indication: PLASMA CELL MYELOMA
     Route: 048
  2. DEXAMETHASONE. [Concomitant]
     Active Substance: DEXAMETHASONE
     Indication: PLASMA CELL MYELOMA
     Route: 065

REACTIONS (15)
  - Thrombocytopenia [Unknown]
  - Pneumonia [Fatal]
  - Embolism venous [Unknown]
  - Thrombosis [Unknown]
  - Neutropenia [Unknown]
  - Fatigue [Unknown]
  - Pulmonary embolism [Fatal]
  - Infection [Unknown]
  - Disease progression [Unknown]
  - Renal failure [Fatal]
  - Death [Fatal]
  - Febrile neutropenia [Unknown]
  - Neuropathy peripheral [Unknown]
  - Toxicity to various agents [Unknown]
  - Anaemia [Unknown]
